FAERS Safety Report 23196587 (Version 1)
Quarter: 2023Q4

REPORT INFORMATION
  Report Type: Spontaneous
  Country: US (occurrence: US)
  Receive Date: 20231117
  Receipt Date: 20231117
  Transmission Date: 20240110
  Serious: Yes (Hospitalization)
  Sender: FDA-Public Use
  Company Number: US-PFIZER INC-202300294355

PATIENT
  Age: 36 Year
  Sex: Female
  Weight: 90.2 kg

DRUGS (1)
  1. OXBRYTA [Suspect]
     Active Substance: VOXELOTOR
     Dosage: 1500 MG, 1X/DAY
     Route: 048

REACTIONS (5)
  - Sickle cell anaemia with crisis [Unknown]
  - Osteonecrosis [Unknown]
  - Gastritis [Unknown]
  - Deep vein thrombosis [Unknown]
  - Product dose omission issue [Unknown]

NARRATIVE: CASE EVENT DATE: 20230818
